FAERS Safety Report 9893815 (Version 1)
Quarter: 2014Q1

REPORT INFORMATION
  Report Type: Spontaneous
  Country: US (occurrence: US)
  Receive Date: 20140213
  Receipt Date: 20140213
  Transmission Date: 20141002
  Serious: No
  Sender: FDA-Public Use
  Company Number: US-B.I. PHARMACEUTICALS,INC./RIDGEFIELD-2014-BI-06226BP

PATIENT
  Age: 67 Year
  Sex: Female

DRUGS (6)
  1. COMBIVENT [Suspect]
     Indication: CHRONIC OBSTRUCTIVE PULMONARY DISEASE
     Dosage: STRENGTH: 20 MCG / 100 MCG; DAILY DOSE: 80 MCG/400 MCG
     Route: 055
     Dates: start: 201308
  2. ZOLOFT [Concomitant]
     Route: 048
  3. ADVAIR [Concomitant]
     Route: 055
     Dates: start: 2004, end: 201307
  4. LISINOPRIL [Concomitant]
     Route: 048
  5. ATIVAN [Concomitant]
     Route: 048
  6. PRILOSEC [Concomitant]
     Route: 048

REACTIONS (1)
  - Pneumonia [Not Recovered/Not Resolved]
